FAERS Safety Report 8611075-8 (Version None)
Quarter: 2012Q3

REPORT INFORMATION
  Report Type: 
  Country: None (occurrence: None)
  Receive Date: 20120822
  Receipt Date: 20120810
  Transmission Date: 20120928
  Serious: Yes (Hospitalization)
  Sender: FDA-Public Use
  Company Number: NL-MILLENNIUM PHARMACEUTICALS, INC.-2012-00176

PATIENT

DRUGS (20)
  1. DEXAMETHASONE [Suspect]
     Indication: MULTIPLE MYELOMA
     Dosage: 40 MG, UNK
     Route: 048
     Dates: start: 20111223, end: 20120103
  2. TRAMAL                             /00599201/ [Concomitant]
     Dosage: 50 MG, UNK
     Route: 048
  3. ACETAMINOPHEN [Concomitant]
     Dosage: 1000 MG, QID
     Route: 048
  4. ASCAL                              /00002702/ [Concomitant]
     Dosage: 100 MG, UNK
     Route: 048
  5. OXYCODONE HCL [Concomitant]
     Dosage: 20 MG, UNK
  6. FLUCONAZOLE [Concomitant]
     Dosage: 200 MG, UNK
     Route: 048
  7. GABAPENTIN [Concomitant]
     Dosage: 100 MG, TID
     Route: 048
  8. CYCLOPHOSPHAMIDE [Suspect]
     Dosage: 4000 MG/M2, UNK
     Route: 065
     Dates: start: 20120203, end: 20120203
  9. PERSANTINE [Concomitant]
     Dosage: 200 MG, UNK
     Route: 048
  10. HALDOL [Concomitant]
     Dosage: 1 MG, UNK
     Route: 048
  11. OMEPRAZOLE [Concomitant]
     Dosage: 40 MG, UNK
     Route: 048
  12. BUTRANS [Concomitant]
     Route: 062
  13. FRAGMIN [Concomitant]
     Dosage: 12500 IU, UNK
     Route: 058
  14. VELCADE [Suspect]
     Indication: MULTIPLE MYELOMA
     Dosage: 1.3 MG/M2, UNK
     Route: 042
     Dates: start: 20111223, end: 20120102
  15. ESOMEPRAZOLE SODIUM [Concomitant]
     Dosage: 40 MG, UNK
     Route: 048
  16. PREGABALIN [Concomitant]
     Dosage: 75 MG, UNK
     Route: 048
  17. COTRIM [Concomitant]
     Dosage: 480 MG, BID
     Route: 048
  18. VALACICLOVIR [Concomitant]
     Dosage: 500 MG, UNK
     Route: 048
  19. CYCLOPHOSPHAMIDE [Suspect]
     Indication: MULTIPLE MYELOMA
     Dosage: 500 MG/M2, UNK
     Route: 042
     Dates: start: 20111223, end: 20111230
  20. HYDROCHLOROTHIAZIDE [Concomitant]
     Dosage: 12.5 MG, UNK

REACTIONS (2)
  - PNEUMONIA [None]
  - PAIN [None]
